FAERS Safety Report 8023959-2 (Version None)
Quarter: 2012Q1

REPORT INFORMATION
  Report Type: 
  Country: None (occurrence: None)
  Receive Date: 20120105
  Receipt Date: 20120103
  Transmission Date: 20120608
  Serious: Yes (Life-Threatening, Hospitalization, Other)
  Sender: FDA-Public Use
  Company Number: CA-PFIZER INC-002-0916-M0100001

PATIENT
  Age: 17 Year
  Sex: Female

DRUGS (4)
  1. PREGABALIN [Suspect]
     Dosage: 600MG, UNK
     Route: 048
     Dates: start: 20010731, end: 20010731
  2. CARBAMAZEPINE [Suspect]
     Dosage: ONCE
     Route: 048
     Dates: start: 20010731, end: 20010731
  3. TOPIRAMATE [Suspect]
     Dosage: ONCE
     Route: 048
     Dates: start: 20010731, end: 20010731
  4. ALCOHOL [Suspect]
     Dosage: UNK
     Route: 065

REACTIONS (5)
  - INTENTIONAL OVERDOSE [None]
  - SUICIDAL IDEATION [None]
  - SOMNOLENCE [None]
  - ABNORMAL BEHAVIOUR [None]
  - SPEECH DISORDER [None]
